FAERS Safety Report 8870369 (Version 2)
Quarter: 2012Q4

REPORT INFORMATION
  Report Type: 
  Country: CA (occurrence: CA)
  Receive Date: 20121029
  Receipt Date: 20121206
  Transmission Date: 20130627
  Serious: Yes (Other)
  Sender: FDA-Public Use
  Company Number: CA-AMGEN-CANSP2012037582

PATIENT
  Age: 41 Year
  Sex: Female

DRUGS (3)
  1. ENBREL [Suspect]
     Indication: ANKYLOSING SPONDYLITIS
     Dosage: 50 mg, qwk
     Route: 058
     Dates: start: 20111108, end: 201206
  2. DILAUDID [Concomitant]
     Indication: PAIN
     Dosage: 4 ml, qid
     Route: 048
  3. LASIX                              /00032601/ [Concomitant]
     Dosage: UNK

REACTIONS (1)
  - Optic neuritis [Recovering/Resolving]
